FAERS Safety Report 7052739-X (Version None)
Quarter: 2010Q4

REPORT INFORMATION
  Report Type: 
  Country: None (occurrence: None)
  Receive Date: 20101013
  Receipt Date: 20101007
  Transmission Date: 20110411
  Serious: Yes (Other)
  Sender: FDA-Public Use
  Company Number: A0885433A

PATIENT
  Age: 84 Year
  Sex: Male

DRUGS (1)
  1. UREA PEROXIDE [Suspect]
     Indication: PRODUCT USED FOR UNKNOWN INDICATION
     Dosage: SEE DOSAGE TEXT

REACTIONS (3)
  - DEAFNESS [None]
  - DRUG ADMINISTRATION ERROR [None]
  - EAR DISCOMFORT [None]
